FAERS Safety Report 14071074 (Version 6)
Quarter: 2017Q4

REPORT INFORMATION
  Report Type: Spontaneous
  Country: US (occurrence: US)
  Receive Date: 20171010
  Receipt Date: 20171201
  Transmission Date: 20180321
  Serious: Yes (Hospitalization)
  Sender: FDA-Public Use
  Company Number: US-JNJFOC-20170925634

PATIENT
  Age: 70 Year
  Sex: Male
  Weight: 104 kg

DRUGS (12)
  1. REQUIP [Concomitant]
     Active Substance: ROPINIROLE HYDROCHLORIDE
     Route: 065
  2. PREDNISONE. [Concomitant]
     Active Substance: PREDNISONE
     Indication: CHEMOTHERAPY
     Route: 048
  3. AMLODIPINE [Concomitant]
     Active Substance: AMLODIPINE BESYLATE
     Indication: HYPERTENSION
     Route: 048
     Dates: start: 2016
  4. IMBRUVICA [Suspect]
     Active Substance: IBRUTINIB
     Indication: CHRONIC LYMPHOCYTIC LEUKAEMIA
     Route: 048
     Dates: start: 20160318
  5. VITAMIN B2 [Concomitant]
     Active Substance: RIBOFLAVIN
     Indication: VITAMIN SUPPLEMENTATION
     Dosage: 1.2 MG/50000 UNITS (1 IN 1 WEEK)
     Route: 048
     Dates: start: 2016
  6. ROPINIROLE. [Concomitant]
     Active Substance: ROPINIROLE
     Indication: RESTLESS LEGS SYNDROME
     Route: 048
     Dates: start: 2002
  7. VITAMIN D [Concomitant]
     Active Substance: CHOLECALCIFEROL
  8. CENTRUM SILVER [Concomitant]
     Active Substance: MINERALS\VITAMINS
  9. CLARITIN-D NOS [Concomitant]
     Active Substance: LORATADINE\PSEUDOEPHEDRINE SULFATE
     Indication: HYPERSENSITIVITY
     Route: 048
     Dates: start: 201709
  10. IMBRUVICA [Suspect]
     Active Substance: IBRUTINIB
     Indication: CHRONIC LYMPHOCYTIC LEUKAEMIA
     Route: 048
     Dates: start: 2014, end: 2017
  11. ALLOPURINOL. [Concomitant]
     Active Substance: ALLOPURINOL
     Indication: CHEMOTHERAPY
     Route: 048
     Dates: start: 20170822
  12. NARINE [Concomitant]
     Indication: HYPERSENSITIVITY
     Route: 048
     Dates: start: 20170829

REACTIONS (18)
  - Bacterial sepsis [Recovered/Resolved]
  - Body height decreased [Not Recovered/Not Resolved]
  - Product use issue [Unknown]
  - White blood cell count decreased [Recovering/Resolving]
  - Drug ineffective [Recovered/Resolved]
  - Dizziness [Not Recovered/Not Resolved]
  - Off label use [Unknown]
  - Dyspnoea [Not Recovered/Not Resolved]
  - Sinusitis [Recovered/Resolved]
  - Platelet count decreased [Recovering/Resolving]
  - White blood cell count increased [Not Recovered/Not Resolved]
  - Adverse drug reaction [Unknown]
  - Full blood count abnormal [Recovering/Resolving]
  - Haemoglobin decreased [Not Recovered/Not Resolved]
  - Dehydration [Recovering/Resolving]
  - Red blood cell count decreased [Recovering/Resolving]
  - Blood lactate dehydrogenase increased [Unknown]
  - Fatigue [Not Recovered/Not Resolved]

NARRATIVE: CASE EVENT DATE: 2014
